FAERS Safety Report 24268295 (Version 2)
Quarter: 2024Q3

REPORT INFORMATION
  Report Type: Spontaneous
  Country: AU (occurrence: AU)
  Receive Date: 20240830
  Receipt Date: 20240909
  Transmission Date: 20241017
  Serious: Yes (Hospitalization)
  Sender: MERCK
  Company Number: AU-ROCHE-3526347

PATIENT
  Age: 53 Year
  Sex: Female
  Weight: 96.85 kg

DRUGS (19)
  1. PEMBROLIZUMAB [Suspect]
     Active Substance: PEMBROLIZUMAB
     Indication: Lung squamous cell carcinoma metastatic
     Dosage: UNK, Q3W(LOT NUMBER: WQ006245, WQ541699)
     Route: 042
     Dates: start: 20231221
  2. TOBEMSTOMIG [Suspect]
     Active Substance: TOBEMSTOMIG
     Indication: Lung squamous cell carcinoma metastatic
     Dosage: UNK, Q3W
     Route: 042
     Dates: start: 20231221
  3. PACLITAXEL [Suspect]
     Active Substance: PACLITAXEL
     Indication: Lung squamous cell carcinoma metastatic
     Dosage: 396 MILLIGRAM, Q3W(LOT NUMBER: 1176190, 1179255)
     Route: 042
     Dates: start: 20231221
  4. CARBOPLATIN [Suspect]
     Active Substance: CARBOPLATIN
     Indication: Lung squamous cell carcinoma metastatic
     Dosage: 725 MILLIGRAM, Q3W(LOT NUMBER: 1179921, 1179255)
     Route: 042
     Dates: start: 20231221
  5. ALBUMIN HUMAN [Concomitant]
     Active Substance: ALBUMIN HUMAN
     Indication: Hypoalbuminaemia
     Dosage: 100 MILLILITER
     Route: 042
     Dates: start: 20231215, end: 20231215
  6. DEXAMETHASONE [Concomitant]
     Active Substance: DEXAMETHASONE
     Indication: COVID-19 immunisation
     Dosage: 20 MG, PRN
     Route: 048
     Dates: start: 20231220, end: 20240131
  7. DEXAMETHASONE [Concomitant]
     Active Substance: DEXAMETHASONE
     Dosage: 8 MG, PRN
     Route: 048
     Dates: start: 20231223, end: 20240224
  8. DEXAMETHASONE [Concomitant]
     Active Substance: DEXAMETHASONE
     Dosage: 12 MG, PRN
     Route: 048
     Dates: start: 20231221, end: 20240222
  9. ESOMEPRAZOLE [Concomitant]
     Active Substance: ESOMEPRAZOLE
     Indication: Dyspepsia
     Dosage: UNK, PRN
     Route: 048
     Dates: start: 20240120, end: 20240208
  10. HYDROCORTISONE SODIUM SUCCINATE [Concomitant]
     Active Substance: HYDROCORTISONE SODIUM SUCCINATE
     Indication: Infusion related reaction
     Dosage: 100 MILLIGRAM
     Route: 042
     Dates: start: 20240111, end: 20240111
  11. IBUPROFEN [Concomitant]
     Active Substance: IBUPROFEN
     Indication: Headache
     Dosage: UNK, PRN
     Route: 048
     Dates: start: 20240109, end: 20240109
  12. IBUPROFEN [Concomitant]
     Active Substance: IBUPROFEN
     Indication: Abdominal pain upper
     Dosage: UNK
     Route: 048
     Dates: start: 20231224, end: 20231224
  13. IBUPROFEN [Concomitant]
     Active Substance: IBUPROFEN
     Dosage: UNK, PRN
     Route: 048
     Dates: start: 20240126, end: 20240202
  14. MAGNESIUM SULFATE [Concomitant]
     Active Substance: MAGNESIUM SULFATE\MAGNESIUM SULFATE HEPTAHYDRATE
     Indication: Hypomagnesaemia
     Dosage: UNK
     Route: 042
     Dates: start: 20240313, end: 20240313
  15. PALONOSETRON [Concomitant]
     Active Substance: PALONOSETRON
     Indication: Chemotherapy side effect prophylaxis
     Dosage: UNK, PRN
     Route: 048
     Dates: start: 20231221, end: 20240222
  16. ACETAMINOPHEN [Concomitant]
     Active Substance: ACETAMINOPHEN
     Dosage: 1000 MILLIGRAM
     Route: 048
     Dates: start: 20240404
  17. PEGFILGRASTIM [Concomitant]
     Active Substance: PEGFILGRASTIM
     Dosage: 6 MILLIGRAM
     Route: 058
     Dates: start: 20231222, end: 20240224
  18. PROMETHAZINE HYDROCHLORIDE [Concomitant]
     Active Substance: PROMETHAZINE HYDROCHLORIDE
     Indication: Infusion related reaction
     Dosage: UNK
     Route: 048
     Dates: start: 20240111, end: 20240111
  19. VENTOLIN [Concomitant]
     Active Substance: ALBUTEROL SULFATE
     Indication: Asthma
     Dosage: UNK, PRN
     Dates: start: 2003

REACTIONS (2)
  - Anaemia [Recovered/Resolved]
  - Hypokalaemia [Recovered/Resolved]

NARRATIVE: CASE EVENT DATE: 20240108
